FAERS Safety Report 20958659 (Version 1)
Quarter: 2022Q2

REPORT INFORMATION
  Report Type: Spontaneous
  Country: US (occurrence: None)
  Receive Date: 20220614
  Receipt Date: 20220614
  Transmission Date: 20220721
  Serious: Yes (Other)
  Sender: FDA-Public Use
  Company Number: None

PATIENT
  Age: 67 Year
  Sex: Female
  Weight: 77.11 kg

DRUGS (10)
  1. FORTEO [Suspect]
     Active Substance: TERIPARATIDE
     Indication: Osteoporosis
     Dosage: FREQUENCY : DAILY;?AT BEDTIME
     Route: 058
     Dates: start: 20220124, end: 20220404
  2. GABAPENTIN [Concomitant]
     Active Substance: GABAPENTIN
  3. INVERMECTIN [Concomitant]
  4. CELEBREX [Concomitant]
     Active Substance: CELECOXIB
  5. ALPHAGAN P [Concomitant]
     Active Substance: BRIMONIDINE TARTRATE
  6. OSTEOBIOFLEX [Concomitant]
  7. HERBALS\TURMERIC [Concomitant]
     Active Substance: HERBALS\TURMERIC
  8. VITAMIN D3 [Concomitant]
     Active Substance: CHOLECALCIFEROL
  9. VOLTAREN [Concomitant]
     Active Substance: DICLOFENAC SODIUM
  10. FEXOFENADINE HCL [Concomitant]
     Active Substance: FEXOFENADINE HYDROCHLORIDE

REACTIONS (3)
  - Calcium ionised increased [None]
  - Blood calcium increased [None]
  - Dizziness [None]

NARRATIVE: CASE EVENT DATE: 20220304
